FAERS Safety Report 4423978-9 (Version None)
Quarter: 2004Q3

REPORT INFORMATION
  Report Type: 
  Country: None (occurrence: None)
  Receive Date: 20040806
  Receipt Date: 20040720
  Transmission Date: 20050211
  Serious: Yes (Death, Life-Threatening)
  Sender: FDA-Public Use
  Company Number: DE_040713955

PATIENT
  Age: 75 Year
  Sex: Female

DRUGS (9)
  1. DOBUTREX [Suspect]
     Indication: HYPOTENSION
     Dates: start: 20040606
  2. TAZOBAC [Concomitant]
  3. ERYTHROMYCIN [Concomitant]
  4. AMITRIPTYLINE HCL [Concomitant]
  5. PREDNISONE TAB [Concomitant]
  6. MARCUMAR [Concomitant]
  7. ALDACTONE [Concomitant]
  8. TAVANIC (LEVOFLOXACIN) [Concomitant]
  9. ARTERENOL (NOREPINEPHRINE HYDROCHLORIDE) [Concomitant]

REACTIONS (3)
  - ELECTROCARDIOGRAM QT PROLONGED [None]
  - LEFT VENTRICULAR FAILURE [None]
  - VENTRICULAR TACHYCARDIA [None]
